FAERS Safety Report 25613087 (Version 1)
Quarter: 2025Q3

REPORT INFORMATION
  Report Type: Spontaneous
  Country: US (occurrence: US)
  Receive Date: 20250728
  Receipt Date: 20250728
  Transmission Date: 20251020
  Serious: No
  Sender: DR REDDYS
  Company Number: US-DRL-USA-USA/2025/06/009398

PATIENT
  Sex: Female

DRUGS (2)
  1. NICOTINE [Suspect]
     Active Substance: NICOTINE
     Indication: Product used for unknown indication
     Route: 062
  2. NICOTINE [Suspect]
     Active Substance: NICOTINE
     Route: 062

REACTIONS (4)
  - Tremor [Not Recovered/Not Resolved]
  - Illness [Unknown]
  - Frequent bowel movements [Unknown]
  - Incorrect dose administered [Unknown]
